FAERS Safety Report 10431748 (Version 2)
Quarter: 2015Q2

REPORT INFORMATION
  Report Type: Other
  Country: GB (occurrence: GB)
  Receive Date: 20140904
  Receipt Date: 20150513
  Transmission Date: 20150821
  Serious: Yes (Other)
  Sender: FDA-Public Use
  Company Number: GB-MYLAN-2014M1002900

PATIENT

DRUGS (11)
  1. LOFEPRAMINE [Concomitant]
     Active Substance: LOFEPRAMINE
     Dosage: UNK
  2. SERETIDE [Concomitant]
     Active Substance: FLUTICASONE FUROATE\SALMETEROL XINAFOATE
  3. VITAMIN B12 [Concomitant]
     Active Substance: CYANOCOBALAMIN
  4. SIMVASTATIN. [Suspect]
     Active Substance: SIMVASTATIN
     Indication: BLOOD CHOLESTEROL INCREASED
     Dosage: 40 MG, UNK
     Route: 048
     Dates: start: 20140731, end: 20140813
  5. VITAMIN D                          /00107901/ [Concomitant]
     Active Substance: ERGOCALCIFEROL
  6. CETIRIZINE [Concomitant]
     Active Substance: CETIRIZINE HYDROCHLORIDE
     Dosage: UNK
  7. METFORMIN [Concomitant]
     Active Substance: METFORMIN HYDROCHLORIDE
  8. OXYBUTYNIN [Concomitant]
     Active Substance: OXYBUTYNIN
  9. ZOMORPH [Concomitant]
     Active Substance: MORPHINE SULFATE
     Indication: CARPAL TUNNEL DECOMPRESSION
     Dosage: 1 DF, BID
  10. TRAMADOL [Concomitant]
     Active Substance: TRAMADOL
  11. NORETHISTERONE [Concomitant]
     Active Substance: NORETHINDRONE

REACTIONS (7)
  - Trismus [Not Recovered/Not Resolved]
  - Condition aggravated [Unknown]
  - Myositis [Not Recovered/Not Resolved]
  - Muscle spasms [Not Recovered/Not Resolved]
  - Myalgia [Not Recovered/Not Resolved]
  - Insomnia [Not Recovered/Not Resolved]
  - Chest pain [Not Recovered/Not Resolved]

NARRATIVE: CASE EVENT DATE: 20140810
